FAERS Safety Report 4376935-5 (Version None)
Quarter: 2004Q2

REPORT INFORMATION
  Report Type: 
  Country: None (occurrence: None)
  Receive Date: 20040608
  Receipt Date: 20040528
  Transmission Date: 20050107
  Serious: Yes (Death, Life-Threatening, Hospitalization)
  Sender: FDA-Public Use
  Company Number: 000886

PATIENT
  Age: 48 Year
  Sex: Male
  Weight: 90 kg

DRUGS (3)
  1. ZEVALIN THERAPY  .(RITUXIMAB, INDIUM-111IBRITUMOMAB TIUXETAN, YTTRIUM- [Suspect]
     Indication: NON-HODGKIN'S LYMPHOMA
     Dosage: SEE IMAGE
     Route: 042
     Dates: start: 20040305, end: 20040305
  2. ZEVALIN THERAPY  .(RITUXIMAB, INDIUM-111IBRITUMOMAB TIUXETAN, YTTRIUM- [Suspect]
     Indication: NON-HODGKIN'S LYMPHOMA
     Dosage: SEE IMAGE
     Route: 042
     Dates: start: 20040312, end: 20040312
  3. ZEVALIN THERAPY  .(RITUXIMAB, INDIUM-111IBRITUMOMAB TIUXETAN, YTTRIUM- [Suspect]
     Indication: NON-HODGKIN'S LYMPHOMA
     Dosage: SEE IMAGE
     Route: 042
     Dates: start: 20040312, end: 20040312

REACTIONS (4)
  - GENERAL PHYSICAL HEALTH DETERIORATION [None]
  - MULTI-ORGAN FAILURE [None]
  - PANCYTOPENIA [None]
  - PNEUMONIA [None]
